FAERS Safety Report 8586333 (Version 2)
Quarter: 2014Q1

REPORT INFORMATION
  Report Type: Report from Study
  Country: US (occurrence: US)
  Receive Date: 20120530
  Receipt Date: 20140328
  Transmission Date: 20141002
  Serious: Yes (Life-Threatening, Hospitalization, Other)
  Sender: FDA-Public Use
  Company Number: US-ELI_LILLY_AND_COMPANY-US201205009725

PATIENT
  Sex: Female

DRUGS (2)
  1. SOMATROPIN [Suspect]
     Indication: GROWTH HORMONE DEFICIENCY
     Dosage: 0.6 MG, UNK
     Route: 065
     Dates: start: 2007
  2. SOMATROPIN [Suspect]
     Dosage: 0.6 MG, QD
     Route: 065
     Dates: start: 2010, end: 20120324

REACTIONS (4)
  - Holoprosencephaly [Unknown]
  - Meningitis [Unknown]
  - Cough [Unknown]
  - Cough decreased [Recovered/Resolved]
